FAERS Safety Report 11394193 (Version 1)
Quarter: 2015Q3

REPORT INFORMATION
  Report Type: Spontaneous
  Country: US (occurrence: None)
  Receive Date: 20150817
  Receipt Date: 20150817
  Transmission Date: 20151125
  Serious: No
  Sender: FDA-Public Use
  Company Number: None

PATIENT
  Age: 48 Year
  Sex: Male
  Weight: 102.06 kg

DRUGS (10)
  1. METFORMIN [Concomitant]
     Active Substance: METFORMIN HYDROCHLORIDE
  2. PROBIOTICS [Concomitant]
     Active Substance: PROBIOTICS NOS
  3. PRILOSEC [Concomitant]
     Active Substance: OMEPRAZOLE MAGNESIUM
  4. LOW DOSE ASPIRIN [Concomitant]
     Active Substance: ASPIRIN
  5. VICTOZA [Suspect]
     Active Substance: LIRAGLUTIDE
     Indication: BLOOD GLUCOSE
     Dosage: ONCE DAILY SHOT
     Dates: start: 20150803, end: 20150816
  6. GLYBURIDE. [Concomitant]
     Active Substance: GLYBURIDE
  7. VITAMIN B COMPLEX [Concomitant]
     Active Substance: CYANOCOBALAMIN\DEXPANTHENOL\NIACINAMIDE\PYRIDOXINE HYDROCHLORIDE\RIBOFLAVIN 5^-PHOSPHATE SODIUM\THIAMINE HYDROCHLORIDE\VITAMIN B COMPLEX
  8. MAGNESIUM [Concomitant]
     Active Substance: MAGNESIUM
  9. VICTOZA [Suspect]
     Active Substance: LIRAGLUTIDE
     Indication: WEIGHT
     Dosage: ONCE DAILY SHOT
     Dates: start: 20150803, end: 20150816
  10. FISH OIL [Concomitant]
     Active Substance: FISH OIL

REACTIONS (3)
  - Depressed mood [None]
  - Fatigue [None]
  - Depressed level of consciousness [None]

NARRATIVE: CASE EVENT DATE: 20150816
